FAERS Safety Report 17729379 (Version 5)
Quarter: 2024Q1

REPORT INFORMATION
  Report Type: Spontaneous
  Country: US (occurrence: US)
  Receive Date: 20200430
  Receipt Date: 20240320
  Transmission Date: 20240410
  Serious: Yes (Hospitalization, Other)
  Sender: FDA-Public Use
  Company Number: US-GILEAD-2020-0462682

PATIENT
  Sex: Female
  Weight: 98.866 kg

DRUGS (66)
  1. ATRIPLA [Suspect]
     Active Substance: EFAVIRENZ\EMTRICITABINE\TENOFOVIR DISOPROXIL FUMARATE
     Indication: HIV infection
     Dosage: UNK
     Route: 048
     Dates: start: 200607, end: 202001
  2. ATRIPLA [Suspect]
     Active Substance: EFAVIRENZ\EMTRICITABINE\TENOFOVIR DISOPROXIL FUMARATE
     Dosage: UNK
     Route: 048
     Dates: start: 200607, end: 202007
  3. ATRIPLA [Suspect]
     Active Substance: EFAVIRENZ\EMTRICITABINE\TENOFOVIR DISOPROXIL FUMARATE
     Dosage: UNK
     Route: 048
     Dates: start: 200607, end: 201401
  4. ATRIPLA [Suspect]
     Active Substance: EFAVIRENZ\EMTRICITABINE\TENOFOVIR DISOPROXIL FUMARATE
     Dosage: UNK
     Route: 048
     Dates: start: 201507, end: 202001
  5. STRIBILD [Suspect]
     Active Substance: COBICISTAT\ELVITEGRAVIR\EMTRICITABINE\TENOFOVIR DISOPROXIL FUMARATE
     Indication: HIV infection
     Dosage: UNK
     Route: 048
     Dates: start: 201406
  6. STRIBILD [Suspect]
     Active Substance: COBICISTAT\ELVITEGRAVIR\EMTRICITABINE\TENOFOVIR DISOPROXIL FUMARATE
     Dosage: UNK
     Route: 048
     Dates: start: 201401, end: 201507
  7. TYLENOL [Concomitant]
     Active Substance: ACETAMINOPHEN
  8. AMOXICILLIN [Concomitant]
     Active Substance: AMOXICILLIN
  9. LOTENSIN HCT [Concomitant]
     Active Substance: BENAZEPRIL HYDROCHLORIDE\HYDROCHLOROTHIAZIDE
  10. VASOTEC [Concomitant]
     Active Substance: ENALAPRIL MALEATE
  11. ZESTRIL [Concomitant]
     Active Substance: LISINOPRIL
  12. ACCUPRIL [Concomitant]
     Active Substance: QUINAPRIL HYDROCHLORIDE
  13. ALUMINUM HYDROXIDE\DIMETHICONE\MAGNESIUM HYDROXIDE [Concomitant]
     Active Substance: ALUMINUM HYDROXIDE\DIMETHICONE\MAGNESIUM HYDROXIDE
  14. MYLANTA [Concomitant]
     Active Substance: ALUMINUM HYDROXIDE\DIMETHICONE\MAGNESIUM HYDROXIDE
  15. RIOPAN MAGEN GEL [Concomitant]
  16. ATORVASTATIN [Concomitant]
     Active Substance: ATORVASTATIN
  17. BACTRIM [Concomitant]
     Active Substance: SULFAMETHOXAZOLE\TRIMETHOPRIM
  18. XANAX [Concomitant]
     Active Substance: ALPRAZOLAM
  19. VALIUM [Concomitant]
     Active Substance: DIAZEPAM
  20. ATIVAN [Concomitant]
     Active Substance: LORAZEPAM
  21. BUMEX [Concomitant]
     Active Substance: BUMETANIDE
  22. HEPARIN [Concomitant]
     Active Substance: HEPARIN SODIUM
  23. FUROSEMIDE\POTASSIUM CHLORIDE [Concomitant]
     Active Substance: FUROSEMIDE\POTASSIUM CHLORIDE
  24. LITHIUM [Concomitant]
     Active Substance: LITHIUM
  25. IBUPROFEN [Concomitant]
     Active Substance: IBUPROFEN
  26. NAPROXEN [Concomitant]
     Active Substance: NAPROXEN
  27. DICLOFENAC [Concomitant]
     Active Substance: DICLOFENAC
  28. PROZAC [Concomitant]
     Active Substance: FLUOXETINE HYDROCHLORIDE
  29. PAXIL CR [Concomitant]
     Active Substance: PAROXETINE HYDROCHLORIDE
  30. ZOLOFT [Concomitant]
     Active Substance: SERTRALINE HYDROCHLORIDE
  31. TACROLIMUS [Concomitant]
     Active Substance: TACROLIMUS
  32. LANTUS [Concomitant]
     Active Substance: INSULIN GLARGINE
  33. HUMALOG [Concomitant]
     Active Substance: INSULIN LISPRO
  34. METFORMIN [Concomitant]
     Active Substance: METFORMIN HYDROCHLORIDE
  35. PIOGLITAZONE [Concomitant]
     Active Substance: PIOGLITAZONE
  36. ZOLPIDEM [Concomitant]
     Active Substance: ZOLPIDEM TARTRATE
  37. GABAPENTIN [Concomitant]
     Active Substance: GABAPENTIN
  38. ASPIRIN [Concomitant]
     Active Substance: ASPIRIN
  39. NORVASC [Concomitant]
     Active Substance: AMLODIPINE BESYLATE
  40. BENAZEPRIL [Concomitant]
     Active Substance: BENAZEPRIL HYDROCHLORIDE
  41. GEMFIBROZIL [Concomitant]
     Active Substance: GEMFIBROZIL
  42. DOXYCYCLINE [Concomitant]
     Active Substance: DOXYCYCLINE
  43. ACTOS [Concomitant]
     Active Substance: PIOGLITAZONE HYDROCHLORIDE
  44. JANUVIA [Concomitant]
     Active Substance: SITAGLIPTIN PHOSPHATE
  45. ALLOPURINOL [Concomitant]
     Active Substance: ALLOPURINOL
  46. TOUJEO [Concomitant]
     Active Substance: INSULIN GLARGINE
  47. BREXPIPRAZOLE [Concomitant]
     Active Substance: BREXPIPRAZOLE
  48. ATARAX [Concomitant]
     Active Substance: HYDROXYZINE HYDROCHLORIDE
  49. ADVAIR HFA [Concomitant]
     Active Substance: FLUTICASONE PROPIONATE\SALMETEROL XINAFOATE
  50. ALBUTEROL [Concomitant]
     Active Substance: ALBUTEROL
  51. WELLBUTRIN [Concomitant]
     Active Substance: BUPROPION HYDROCHLORIDE
  52. CHANTIX [Concomitant]
     Active Substance: VARENICLINE TARTRATE
  53. PRAVASTATIN [Concomitant]
     Active Substance: PRAVASTATIN
  54. METOPROLOL [Concomitant]
     Active Substance: METOPROLOL
  55. LASIX [Concomitant]
     Active Substance: FUROSEMIDE
  56. LOSARTAN [Concomitant]
     Active Substance: LOSARTAN
  57. HYDRODIURIL [Concomitant]
     Active Substance: HYDROCHLOROTHIAZIDE
  58. IRBESARTAN [Concomitant]
     Active Substance: IRBESARTAN
  59. AMLODIPINE [Concomitant]
     Active Substance: AMLODIPINE BESYLATE
  60. ROZEREM [Concomitant]
     Active Substance: RAMELTEON
  61. COMBIVIR [Concomitant]
     Active Substance: LAMIVUDINE\ZIDOVUDINE
  62. KALETRA [Concomitant]
     Active Substance: LOPINAVIR\RITONAVIR
  63. FLUCONAZOLE [Concomitant]
     Active Substance: FLUCONAZOLE
  64. VITAMIN D NOS [Concomitant]
     Active Substance: VITAMIN D NOS
  65. MONTELUKAST [Concomitant]
     Active Substance: MONTELUKAST SODIUM
  66. TIVICAY [Concomitant]
     Active Substance: DOLUTEGRAVIR SODIUM

REACTIONS (27)
  - End stage renal disease [Not Recovered/Not Resolved]
  - Fracture infection [Unknown]
  - Chronic kidney disease [Unknown]
  - Multiple fractures [Not Recovered/Not Resolved]
  - Hallucination [Not Recovered/Not Resolved]
  - Bone density decreased [Unknown]
  - Tooth loss [Not Recovered/Not Resolved]
  - Loss of personal independence in daily activities [Not Recovered/Not Resolved]
  - Mobility decreased [Not Recovered/Not Resolved]
  - Pain [Not Recovered/Not Resolved]
  - Emotional distress [Not Recovered/Not Resolved]
  - Anxiety [Not Recovered/Not Resolved]
  - Paranoia [Not Recovered/Not Resolved]
  - Arthralgia [Unknown]
  - Ankle fracture [Unknown]
  - Pain in extremity [Unknown]
  - Dental caries [Unknown]
  - Toothache [Unknown]
  - Limb fracture [Unknown]
  - Osteoarthritis [Unknown]
  - Enthesophyte [Unknown]
  - Back pain [Unknown]
  - Skin lesion [Unknown]
  - Bone loss [Unknown]
  - Soft tissue swelling [Unknown]
  - Depression [Not Recovered/Not Resolved]
  - Aggression [Not Recovered/Not Resolved]

NARRATIVE: CASE EVENT DATE: 20080101
